FAERS Safety Report 5695976-9 (Version None)
Quarter: 2008Q2

REPORT INFORMATION
  Report Type: 
  Country: None (occurrence: None)
  Receive Date: 20080407
  Receipt Date: 20080402
  Transmission Date: 20081010
  Serious: Yes (Hospitalization)
  Sender: FDA-Public Use
  Company Number: ZA-BRISTOL-MYERS SQUIBB COMPANY-14019418

PATIENT
  Age: 42 Year
  Sex: Female

DRUGS (2)
  1. DASATINIB [Suspect]
     Indication: CHRONIC MYELOID LEUKAEMIA
     Dosage: INTERRUPTED ON 18-DEC-2007, RECOMMENCED ON 19-JAN-2008.
     Route: 048
     Dates: start: 20070903, end: 20080226
  2. WARFARIN SODIUM [Concomitant]
     Dates: start: 20071106

REACTIONS (2)
  - PLEURAL EFFUSION [None]
  - RIGHT VENTRICULAR FAILURE [None]
